FAERS Safety Report 21083987 (Version 1)
Quarter: 2022Q3

REPORT INFORMATION
  Report Type: Spontaneous
  Country: US (occurrence: US)
  Receive Date: 20220714
  Receipt Date: 20220714
  Transmission Date: 20221026
  Serious: No
  Sender: FDA-Public Use
  Company Number: US-JAZZ-2022-US-012163

PATIENT
  Sex: Male

DRUGS (1)
  1. EPIDIOLEX [Suspect]
     Active Substance: CANNABIDIOL
     Indication: Epilepsy
     Dosage: 0.4 ML BY MOUTH EVERY 12 HOURS FOR 1 WEEK, 0.8 ML EVERY 12 HOURS FOR 1 WEEK, 1.2 ML EVERY 12 HOURS
     Route: 048
     Dates: start: 20220322

REACTIONS (2)
  - Lethargy [Unknown]
  - Somnolence [Unknown]
